FAERS Safety Report 5892881-X (Version None)
Quarter: 2008Q3

REPORT INFORMATION
  Report Type: 
  Country: None (occurrence: None)
  Receive Date: 20080923
  Receipt Date: 20080821
  Transmission Date: 20090109
  Serious: No
  Sender: FDA-Public Use
  Company Number: US-BAYER-200831868NA

PATIENT
  Age: 42 Year
  Sex: Female
  Weight: 100 kg

DRUGS (5)
  1. YAZ [Suspect]
     Indication: UNEVALUABLE EVENT
     Route: 048
     Dates: start: 20080601
  2. SYNTHROID [Concomitant]
  3. METFORMIN HCL [Concomitant]
  4. ZYRTEC [Concomitant]
  5. ASPIRIN [Concomitant]

REACTIONS (2)
  - NO ADVERSE EVENT [None]
  - WITHDRAWAL BLEEDING IRREGULAR [None]
